FAERS Safety Report 25406401 (Version 3)
Quarter: 2025Q4

REPORT INFORMATION
  Report Type: Spontaneous
  Country: JP (occurrence: JP)
  Receive Date: 20250606
  Receipt Date: 20251006
  Transmission Date: 20260118
  Serious: Yes (Death, Hospitalization, Other)
  Sender: GILEAD
  Company Number: JP-GILEAD-2025-0715909

PATIENT
  Age: 36 Year
  Sex: Female
  Weight: 58.3 kg

DRUGS (6)
  1. TRODELVY [Suspect]
     Active Substance: SACITUZUMAB GOVITECAN-HZIY
     Indication: Triple negative breast cancer
     Dosage: 580 MG, QD
     Route: 041
     Dates: start: 20250507, end: 20250528
  2. DEXAMETHASONE SODIUM PHOSPHATE [Concomitant]
     Active Substance: DEXAMETHASONE SODIUM PHOSPHATE
     Dosage: 1.5 ML, QD
     Route: 041
     Dates: start: 20250507, end: 20250528
  3. PALONOSETRON HYDROCHLORIDE [Concomitant]
     Active Substance: PALONOSETRON HYDROCHLORIDE
     Dosage: 0.75 MG, QD
     Route: 041
     Dates: start: 20250507, end: 20250528
  4. FOSNETUPITANT CHLORIDE HYDROCHLORIDE [Concomitant]
     Active Substance: FOSNETUPITANT CHLORIDE HYDROCHLORIDE
     Dosage: 235 MG, QD
     Route: 041
     Dates: start: 20250507, end: 20250528
  5. FAMOTIDINE [Concomitant]
     Active Substance: FAMOTIDINE
     Dosage: 20 MG, QD
     Route: 041
     Dates: start: 20250507, end: 20250528
  6. POLARAMINE [Concomitant]
     Active Substance: DEXCHLORPHENIRAMINE MALEATE
     Dosage: 5 ML, QD
     Route: 041
     Dates: start: 20250507, end: 20250528

REACTIONS (2)
  - Interstitial lung disease [Fatal]
  - Triple negative breast cancer [Unknown]

NARRATIVE: CASE EVENT DATE: 20250601
